FAERS Safety Report 24947769 (Version 1)
Quarter: 2025Q1

REPORT INFORMATION
  Report Type: Spontaneous
  Country: ZA (occurrence: ZA)
  Receive Date: 20250210
  Receipt Date: 20250210
  Transmission Date: 20250409
  Serious: Yes (Hospitalization, Other)
  Sender: ROCHE
  Company Number: ZA-ROCHE-10000200712

PATIENT
  Age: 64 Year
  Sex: Female

DRUGS (4)
  1. PHESGO [Suspect]
     Active Substance: HYALURONIDASE-ZZXF\PERTUZUMAB\TRASTUZUMAB
     Indication: HER2 positive breast cancer
     Route: 058
  2. PHESGO [Suspect]
     Active Substance: HYALURONIDASE-ZZXF\PERTUZUMAB\TRASTUZUMAB
     Route: 058
  3. DOCETAXEL [Suspect]
     Active Substance: DOCETAXEL
     Indication: HER2 positive breast cancer
     Route: 065
  4. CARBOPLATIN [Suspect]
     Active Substance: CARBOPLATIN
     Indication: HER2 positive breast cancer
     Route: 065

REACTIONS (3)
  - Rash [Unknown]
  - Chest discomfort [Unknown]
  - Surgery [Unknown]
